FAERS Safety Report 6632097-2 (Version None)
Quarter: 2010Q1

REPORT INFORMATION
  Report Type: 
  Country: None (occurrence: None)
  Receive Date: 20100312
  Receipt Date: 20100304
  Transmission Date: 20100710
  Serious: Yes (Hospitalization)
  Sender: FDA-Public Use
  Company Number: US-ROCHE-689798

PATIENT
  Age: 82 Year
  Sex: Female

DRUGS (2)
  1. HERCEPTIN [Suspect]
     Indication: BREAST CANCER
     Route: 065
     Dates: start: 20090401
  2. TAMOXIFEN CITRATE [Suspect]
     Indication: BREAST CANCER
     Route: 065
     Dates: start: 20090401

REACTIONS (4)
  - FATIGUE [None]
  - INTERSTITIAL LUNG DISEASE [None]
  - ORGANISING PNEUMONIA [None]
  - PERFORMANCE STATUS DECREASED [None]
